FAERS Safety Report 8595977 (Version 4)
Quarter: 2014Q1

REPORT INFORMATION
  Report Type: Spontaneous
  Country: US (occurrence: US)
  Receive Date: 20120605
  Receipt Date: 20140103
  Transmission Date: 20141002
  Serious: Yes (Hospitalization, Disabling)
  Sender: FDA-Public Use
  Company Number: US-ASTRAZENECA-2012SE36003

PATIENT
  Age: 14753 Day
  Sex: Female

DRUGS (42)
  1. NEXIUM [Suspect]
     Indication: GASTROOESOPHAGEAL REFLUX DISEASE
     Route: 048
     Dates: start: 20021223
  2. NEXIUM [Suspect]
     Indication: GASTROOESOPHAGEAL REFLUX DISEASE
     Route: 048
     Dates: start: 2002, end: 2003
  3. NEXIUM [Suspect]
     Indication: GASTROOESOPHAGEAL REFLUX DISEASE
     Route: 048
     Dates: start: 2002, end: 20031022
  4. OMEPRAZOLE [Suspect]
     Route: 048
     Dates: start: 20100916
  5. OMEPRAZOLE [Suspect]
     Route: 048
     Dates: start: 20100528
  6. PREVACID [Concomitant]
     Indication: GASTROOESOPHAGEAL REFLUX DISEASE
     Dates: start: 20031029
  7. PREVACID [Concomitant]
     Indication: GASTROOESOPHAGEAL REFLUX DISEASE
     Dates: start: 2004, end: 2005
  8. PREVACID [Concomitant]
     Indication: GASTROOESOPHAGEAL REFLUX DISEASE
     Route: 048
     Dates: start: 20080404, end: 20081202
  9. PREVACID [Concomitant]
     Indication: GASTROOESOPHAGEAL REFLUX DISEASE
     Dates: start: 20081202, end: 20101118
  10. PREVACID [Concomitant]
     Indication: GASTROOESOPHAGEAL REFLUX DISEASE
     Route: 048
     Dates: start: 20101119
  11. PREVACID [Concomitant]
     Indication: GASTROOESOPHAGEAL REFLUX DISEASE
     Route: 048
  12. ACIPHEX [Concomitant]
     Route: 048
     Dates: start: 20050603
  13. ACIPHEX [Concomitant]
     Dates: start: 20110726
  14. ZANTAC [Concomitant]
     Dates: start: 2008
  15. ZANTAC [Concomitant]
     Route: 048
  16. TUMS [Concomitant]
     Dosage: 500, 1.25 MG, PRN
     Route: 048
  17. NASONEX [Concomitant]
     Dosage: 500 MCG, 2 SPRAY I EACH NOSTRILL QD
     Route: 045
     Dates: start: 20101118
  18. FEXOFENADINE HYDROCHLORIDE [Concomitant]
     Route: 048
  19. MULTIVITAMIN [Concomitant]
     Route: 048
  20. VITAMIN C [Concomitant]
     Route: 048
  21. VITAMIN E [Concomitant]
     Route: 048
  22. VITAMIN D [Concomitant]
  23. CALCIUM [Concomitant]
  24. CELEBREX [Concomitant]
     Indication: PAIN
     Dates: start: 20030806
  25. CELEBREX [Concomitant]
     Indication: PAIN
     Route: 048
     Dates: start: 20081219
  26. SEPTRA DS [Concomitant]
     Dosage: 160 MG/80 MG, Q12H
     Route: 048
  27. TOVIAZ [Concomitant]
     Route: 048
     Dates: start: 20110331
  28. MOBIC [Concomitant]
     Route: 048
     Dates: start: 20081229
  29. TANDEM PLUS [Concomitant]
     Route: 048
     Dates: start: 20081229
  30. TANDEM PLUS [Concomitant]
     Route: 048
     Dates: start: 20081222
  31. ASPIRIN [Concomitant]
     Route: 048
  32. ALLEGRA-D [Concomitant]
     Dosage: 60/120 MG, BID
     Route: 048
  33. NABUMETONE [Concomitant]
     Dosage: 500 MG, 1-2 QD
     Route: 048
  34. VITAMIN D3 [Concomitant]
     Route: 048
  35. LIDOCAINE HCL [Concomitant]
  36. SINGULAIR [Concomitant]
     Route: 048
     Dates: start: 20030715
  37. CALCIUM/ VITAMIN D [Concomitant]
     Dosage: 600-400 MG, DAILY
     Route: 048
  38. ZYRTEC [Concomitant]
     Dates: start: 20020707
  39. CEPHALEXIN [Concomitant]
     Dates: start: 20030111
  40. HYDROCODONE/APAP [Concomitant]
     Dosage: 7.5/750 MG
     Dates: start: 20030313
  41. AMBIEN [Concomitant]
     Dates: start: 20030313
  42. SKELAXIN [Concomitant]
     Dates: start: 20030313

REACTIONS (5)
  - Allergic sinusitis [Unknown]
  - Foot fracture [Unknown]
  - Fractured sacrum [Unknown]
  - Osteoporosis [Unknown]
  - Bone pain [Unknown]
